FAERS Safety Report 5535018-9 (Version None)
Quarter: 2007Q4

REPORT INFORMATION
  Report Type: 
  Country: None (occurrence: None)
  Receive Date: 20071205
  Receipt Date: 20071130
  Transmission Date: 20080405
  Serious: Yes (Hospitalization, Disabling)
  Sender: FDA-Public Use
  Company Number: GB-MERCK-0712GBR00003

PATIENT
  Age: 93 Year
  Sex: Female
  Weight: 85 kg

DRUGS (6)
  1. ZOCOR [Suspect]
     Indication: HYPERLIPIDAEMIA
     Route: 048
     Dates: start: 20040203, end: 20071001
  2. CALCIUM CARBONATE AND CHOLECALCIFEROL [Concomitant]
     Indication: BONE DISORDER
     Route: 048
  3. CLOPIDOGREL BISULFATE [Concomitant]
     Indication: CEREBROVASCULAR ACCIDENT
     Route: 048
  4. ACETAMINOPHEN AND CODEINE PHOSPHATE [Concomitant]
     Indication: ANALGESIA
     Route: 048
  5. LACTULOSE [Concomitant]
     Indication: INTESTINAL FUNCTIONAL DISORDER
     Route: 048
  6. OMEPRAZOLE [Concomitant]
     Indication: DUODENAL ULCER
     Route: 048

REACTIONS (3)
  - ASTHENIA [None]
  - FATIGUE [None]
  - NEUROMYOPATHY [None]
